FAERS Safety Report 8256647-8 (Version None)
Quarter: 2012Q2

REPORT INFORMATION
  Report Type: 
  Country: None (occurrence: None)
  Receive Date: 20120403
  Receipt Date: 20120329
  Transmission Date: 20120825
  Serious: Yes (Life-Threatening, Other)
  Sender: FDA-Public Use
  Company Number: US-MERCK-1203USA00143

PATIENT
  Age: 74 Year
  Sex: Female

DRUGS (2)
  1. NIASPAN [Concomitant]
     Route: 065
  2. JANUVIA [Suspect]
     Indication: DIABETES MELLITUS
     Route: 048
     Dates: start: 20080604, end: 20120206

REACTIONS (4)
  - OEDEMA [None]
  - ANAEMIA [None]
  - THROMBOCYTOPENIA [None]
  - HEPATITIS [None]
